FAERS Safety Report 9649299 (Version 2)
Quarter: 2013Q4

REPORT INFORMATION
  Report Type: Spontaneous
  Country: US (occurrence: US)
  Receive Date: 20131028
  Receipt Date: 20131204
  Transmission Date: 20140711
  Serious: No
  Sender: FDA-Public Use
  Company Number: US-009507513-1310USA012278

PATIENT
  Sex: Female

DRUGS (1)
  1. NEXPLANON [Suspect]
     Dosage: UNKNOWN

REACTIONS (3)
  - Injury associated with device [Unknown]
  - Haemorrhage [Unknown]
  - Product closure removal difficult [Unknown]
